FAERS Safety Report 8958688 (Version 1)
Quarter: 2012Q4

REPORT INFORMATION
  Report Type: 
  Country: US (occurrence: US)
  Receive Date: 20121212
  Receipt Date: 20121212
  Transmission Date: 20130627
  Serious: Yes (Hospitalization, Other)
  Sender: FDA-Public Use
  Company Number: US-ASTRAZENECA-2011SE08265

PATIENT
  Age: 68 Year
  Sex: Female

DRUGS (3)
  1. NEXIUM [Suspect]
     Indication: GASTRITIS
     Route: 048
     Dates: start: 20110211
  2. PLAVIX [Concomitant]
  3. ACTONEL [Concomitant]

REACTIONS (4)
  - Aortic aneurysm [Unknown]
  - Poor peripheral circulation [Unknown]
  - Memory impairment [Unknown]
  - Frequent bowel movements [Unknown]
